FAERS Safety Report 16483685 (Version 1)
Quarter: 2019Q2

REPORT INFORMATION
  Report Type: Spontaneous
  Country: US (occurrence: US)
  Receive Date: 20190627
  Receipt Date: 20190627
  Transmission Date: 20190711
  Serious: No
  Sender: FDA-Public Use
  Company Number: US-ELI_LILLY_AND_COMPANY-US201906001255

PATIENT

DRUGS (1)
  1. EVISTA [Suspect]
     Active Substance: RALOXIFENE HYDROCHLORIDE
     Indication: OSTEOPOROSIS
     Dosage: 60 MG, UNKNOWN
     Dates: start: 2003

REACTIONS (5)
  - Disturbance in attention [Unknown]
  - Drug ineffective [Not Recovered/Not Resolved]
  - Depressed level of consciousness [Unknown]
  - Product use issue [Recovered/Resolved]
  - Bone pain [Not Recovered/Not Resolved]
